FAERS Safety Report 6913981-9 (Version None)
Quarter: 2010Q3

REPORT INFORMATION
  Report Type: 
  Country: None (occurrence: None)
  Receive Date: 20100809
  Receipt Date: 20100726
  Transmission Date: 20110219
  Serious: Yes (Hospitalization)
  Sender: FDA-Public Use
  Company Number: PHHY2010CA44628

PATIENT
  Sex: Male

DRUGS (3)
  1. CLOZARIL [Suspect]
     Indication: SCHIZOPHRENIA
     Dosage: 200 MG, BID
     Route: 048
     Dates: start: 20100420, end: 20100726
  2. PANTOPRAZOLE [Concomitant]
     Dosage: UNK
  3. TAMSULOSIN HCL [Concomitant]

REACTIONS (4)
  - AGRANULOCYTOSIS [None]
  - PYREXIA [None]
  - SKIN REACTION [None]
  - ULCER [None]
